FAERS Safety Report 16562703 (Version 1)
Quarter: 2019Q3

REPORT INFORMATION
  Report Type: Spontaneous
  Country: FR (occurrence: FR)
  Receive Date: 20190711
  Receipt Date: 20190711
  Transmission Date: 20191004
  Serious: Yes (Hospitalization)
  Sender: FDA-Public Use
  Company Number: FR-GLAXOSMITHKLINE-FR2019124492

PATIENT
  Age: 48 Year
  Sex: Female
  Weight: 64 kg

DRUGS (1)
  1. AVAMYS [Suspect]
     Active Substance: FLUTICASONE FUROATE
     Indication: RHINITIS ALLERGIC
     Dosage: 2 TO 3 SPRAYS IN EACH NOSTRIL PER DAY
     Route: 045
     Dates: start: 20050430, end: 20170725

REACTIONS (3)
  - Epistaxis [Recovering/Resolving]
  - Perforation [Recovering/Resolving]
  - Nasal ulcer [Recovered/Resolved]

NARRATIVE: CASE EVENT DATE: 2017
